FAERS Safety Report 9304829 (Version 1)
Quarter: 2013Q2

REPORT INFORMATION
  Report Type: Spontaneous
  Country: US (occurrence: None)
  Receive Date: 20130521
  Receipt Date: 20130521
  Transmission Date: 20140414
  Serious: Yes (Hospitalization)
  Sender: FDA-Public Use
  Company Number: None

PATIENT
  Age: 65 Year
  Sex: Male
  Weight: 80 kg

DRUGS (1)
  1. RASBURICASE [Suspect]
     Route: 042
     Dates: start: 20130225, end: 20130225

REACTIONS (3)
  - Rash [None]
  - Urticaria [None]
  - Pruritus [None]
